FAERS Safety Report 5278736-2 (Version None)
Quarter: 2007Q1

REPORT INFORMATION
  Report Type: 
  Country: None (occurrence: None)
  Receive Date: 20070328
  Receipt Date: 20070312
  Transmission Date: 20070707
  Serious: Yes (Hospitalization)
  Sender: FDA-Public Use
  Company Number: US-SANOFI-SYNTHELABO-A03200702172

PATIENT
  Sex: Female

DRUGS (3)
  1. ACTONEL [Concomitant]
     Indication: BONE DISORDER
     Dosage: UNK
     Route: 065
  2. ZETIA [Concomitant]
     Indication: BLOOD CHOLESTEROL INCREASED
     Dosage: UNK
     Route: 065
  3. AMBIEN [Suspect]
     Indication: INSOMNIA
     Route: 048
     Dates: start: 20060101, end: 20060612

REACTIONS (6)
  - AMNESIA [None]
  - CONTUSION [None]
  - FALL [None]
  - HIP FRACTURE [None]
  - PAIN [None]
  - SLEEP WALKING [None]
